FAERS Safety Report 5915609-3 (Version None)
Quarter: 2008Q4

REPORT INFORMATION
  Report Type: 
  Country: None (occurrence: None)
  Receive Date: 20081010
  Receipt Date: 20081001
  Transmission Date: 20090506
  Serious: Yes (Other)
  Sender: FDA-Public Use
  Company Number: JP-PFIZER INC-2008072540

PATIENT
  Age: 80 Year
  Sex: Female

DRUGS (2)
  1. CELECOX [Suspect]
     Indication: OSTEOARTHRITIS
     Route: 048
     Dates: start: 20071122, end: 20071129
  2. VESICARE [Concomitant]
     Dates: start: 20071025, end: 20071129

REACTIONS (1)
  - CARDIAC FAILURE [None]
